FAERS Safety Report 5336993-8 (Version None)
Quarter: 2007Q2

REPORT INFORMATION
  Report Type: 
  Country: None (occurrence: None)
  Receive Date: 20070523
  Receipt Date: 20070515
  Transmission Date: 20071010
  Serious: Yes (Death)
  Sender: FDA-Public Use
  Company Number: 200705AGG00635

PATIENT
  Age: 65 Year
  Sex: Male

DRUGS (6)
  1. AGGRASTAT [Suspect]
     Indication: ANGINA UNSTABLE
  2. HEPARIN [Concomitant]
  3. ASPIRIN [Concomitant]
  4. PLAVIX [Concomitant]
  5. HEPARIN [Concomitant]
  6. INSULIN [Concomitant]

REACTIONS (5)
  - BLOOD CREATINE PHOSPHOKINASE MB INCREASED [None]
  - C-REACTIVE PROTEIN INCREASED [None]
  - CORONARY ARTERY STENOSIS [None]
  - EJECTION FRACTION DECREASED [None]
  - TROPONIN T INCREASED [None]
